FAERS Safety Report 24241879 (Version 1)
Quarter: 2024Q3

REPORT INFORMATION
  Report Type: Report from Study
  Country: US (occurrence: US)
  Receive Date: 20240823
  Receipt Date: 20240823
  Transmission Date: 20241017
  Serious: Yes (Hospitalization)
  Sender: BIOGEN
  Company Number: US-BIOGEN-2024BI01278813

PATIENT
  Age: 29 Year

DRUGS (1)
  1. TYSABRI [Suspect]
     Active Substance: NATALIZUMAB
     Indication: Multiple sclerosis
     Route: 050
     Dates: start: 20240514

REACTIONS (2)
  - Urinary retention [Recovered/Resolved with Sequelae]
  - Pelvic floor muscle weakness [Unknown]

NARRATIVE: CASE EVENT DATE: 20240626
